FAERS Safety Report 5739519-X (Version None)
Quarter: 2008Q2

REPORT INFORMATION
  Report Type: 
  Country: None (occurrence: None)
  Receive Date: 20080515
  Receipt Date: 20080515
  Transmission Date: 20081010
  Serious: No
  Sender: FDA-Public Use
  Company Number: US-BOEHRINGER INGELHEIM GMBH, GERMANY-2007-BP-12538BP

PATIENT
  Sex: Female

DRUGS (2)
  1. MIRAPEX [Suspect]
     Indication: RESTLESS LEGS SYNDROME
     Route: 048
     Dates: start: 20070601
  2. REQUIP [Suspect]
     Indication: RESTLESS LEGS SYNDROME
     Dates: start: 20070601

REACTIONS (3)
  - DECREASED APPETITE [None]
  - MUSCLE TWITCHING [None]
  - NAUSEA [None]
